FAERS Safety Report 23698015 (Version 1)
Quarter: 2024Q2

REPORT INFORMATION
  Report Type: Report from Study
  Country: US (occurrence: US)
  Receive Date: 20240402
  Receipt Date: 20240402
  Transmission Date: 20240715
  Serious: Yes (Hospitalization, Congenital Anomaly)
  Sender: FDA-Public Use
  Company Number: US-AMGEN-USANI2024061922

PATIENT
  Age: 24 Year
  Sex: Female

DRUGS (4)
  1. EVOLOCUMAB [Suspect]
     Active Substance: EVOLOCUMAB
     Indication: Hypercholesterolaemia
     Dosage: UNK
     Route: 065
  2. EVOLOCUMAB [Suspect]
     Active Substance: EVOLOCUMAB
     Dosage: DOSE INCREASED
     Route: 065
  3. EVOLOCUMAB [Suspect]
     Active Substance: EVOLOCUMAB
     Dosage: DOSE: 5
     Route: 065
     Dates: start: 20230712
  4. EVOLOCUMAB [Suspect]
     Active Substance: EVOLOCUMAB
     Dosage: DOSE: 5
     Route: 065
     Dates: start: 20230805

REACTIONS (2)
  - Unevaluable event [Recovered/Resolved with Sequelae]
  - Maternal exposure during pregnancy [Unknown]

NARRATIVE: CASE EVENT DATE: 20221208
